FAERS Safety Report 4392502-1 (Version None)
Quarter: 2004Q3

REPORT INFORMATION
  Report Type: 
  Country: None (occurrence: None)
  Receive Date: 20040702
  Receipt Date: 20040621
  Transmission Date: 20050211
  Serious: Yes (Hospitalization)
  Sender: FDA-Public Use
  Company Number: CPVP2004JPN5256

PATIENT
  Age: 84 Year
  Sex: Male

DRUGS (2)
  1. METLIGINE (MIDODRINE) (2 MILLIGRAM) [Suspect]
     Dosage: (2 MG) PER ORAL
     Route: 048
  2. RISUMIC (AMEZINIUM METISULFATE) [Concomitant]

REACTIONS (1)
  - CEREBRAL HAEMORRHAGE [None]
